FAERS Safety Report 13024531 (Version 2)
Quarter: 2017Q3

REPORT INFORMATION
  Report Type: Report from Study
  Country: DE (occurrence: DE)
  Receive Date: 20161213
  Receipt Date: 20170907
  Transmission Date: 20171127
  Serious: Yes (Hospitalization)
  Sender: FDA-Public Use
  Company Number: DE-CELGENEUS-DEU-2016121226

PATIENT
  Age: 7 Decade
  Sex: Male
  Weight: 52.6 kg

DRUGS (6)
  1. ELIQUIS [Concomitant]
     Active Substance: APIXABAN
     Indication: ANTICOAGULANT THERAPY
     Route: 065
  2. MOXIFLOXACIN. [Concomitant]
     Active Substance: MOXIFLOXACIN
     Indication: PNEUMONIA STREPTOCOCCAL
     Route: 065
  3. CARBOPLATIN. [Concomitant]
     Active Substance: CARBOPLATIN
     Dosage: DOSE REDUCED TO 75%
     Route: 065
  4. ABRAXANE [Suspect]
     Active Substance: PACLITAXEL
     Indication: LUNG SQUAMOUS CELL CARCINOMA STAGE IV
     Dosage: 200 MILLIGRAM/SQ.METER
     Route: 041
     Dates: start: 20151124, end: 20160406
  5. ABRAXANE [Suspect]
     Active Substance: PACLITAXEL
     Dosage: 100 MILLIGRAM/SQ.METER
     Route: 041
  6. CARBOPLATIN. [Concomitant]
     Active Substance: CARBOPLATIN
     Indication: LUNG SQUAMOUS CELL CARCINOMA STAGE IV
     Route: 065
     Dates: start: 20151124, end: 20160406

REACTIONS (5)
  - Chronic obstructive pulmonary disease [Unknown]
  - Leukopenia [Unknown]
  - Lung neoplasm malignant [Unknown]
  - Atrial flutter [Unknown]
  - Neutropenia [Unknown]

NARRATIVE: CASE EVENT DATE: 201603
